FAERS Safety Report 4644111-4 (Version None)
Quarter: 2005Q2

REPORT INFORMATION
  Report Type: 
  Country: None (occurrence: None)
  Receive Date: 20050425
  Receipt Date: 20040604
  Transmission Date: 20051028
  Serious: Yes (Hospitalization)
  Sender: FDA-Public Use
  Company Number: US-GLAXOSMITHKLINE-A0513461A

PATIENT
  Age: 3 Year
  Sex: Female

DRUGS (3)
  1. LAMICTAL [Suspect]
     Indication: ILL-DEFINED DISORDER
     Dosage: 90MG TWICE PER DAY
     Route: 048
  2. KEPPRA [Concomitant]
  3. ANTIBIOTIC [Concomitant]
     Indication: INFECTION

REACTIONS (3)
  - ANTICONVULSANT DRUG LEVEL ABOVE THERAPEUTIC [None]
  - ERYTHEMA [None]
  - LETHARGY [None]
